FAERS Safety Report 18875574 (Version 1)
Quarter: 2021Q1

REPORT INFORMATION
  Report Type: Spontaneous
  Country: US (occurrence: US)
  Receive Date: 20210210
  Receipt Date: 20210210
  Transmission Date: 20210420
  Serious: Yes (Other)
  Sender: FDA-Public Use
  Company Number: US-PFIZER INC-2021113583

PATIENT
  Age: 75 Year
  Sex: Male
  Weight: 51.2 kg

DRUGS (6)
  1. VANCOMYCIN [Concomitant]
     Active Substance: VANCOMYCIN
     Indication: PNEUMONIA
     Dosage: UNK
  2. BACTERIOSTATIC SODIUM CHLORIDE [Suspect]
     Active Substance: SODIUM CHLORIDE
     Dosage: 12.5 L
     Route: 042
  3. AMIKACIN. [Concomitant]
     Active Substance: AMIKACIN
     Indication: PNEUMONIA
     Dosage: UNK
  4. DOPAMINE [Concomitant]
     Active Substance: DOPAMINE HYDROCHLORIDE
     Indication: HYPOTENSION
     Dosage: UNK
  5. BACTERIOSTATIC SODIUM CHLORIDE [Suspect]
     Active Substance: SODIUM CHLORIDE
     Dosage: 1 L (BOLUS)
     Route: 040
  6. PIPERACILLIN. [Concomitant]
     Active Substance: PIPERACILLIN SODIUM
     Indication: PNEUMONIA
     Dosage: UNK

REACTIONS (1)
  - Acidosis hyperchloraemic [Unknown]
